FAERS Safety Report 10900794 (Version 1)
Quarter: 2015Q1

REPORT INFORMATION
  Report Type: Spontaneous
  Country: US (occurrence: US)
  Receive Date: 20150310
  Receipt Date: 20150310
  Transmission Date: 20150721
  Serious: Yes (Other)
  Sender: FDA-Public Use
  Company Number: US-BAYER-2015-035462

PATIENT
  Age: 18 Year
  Sex: Female

DRUGS (1)
  1. SKYLA [Suspect]
     Active Substance: LEVONORGESTREL
     Indication: MENORRHAGIA
     Dosage: 12 MCG/24HR, CONT
     Route: 015
     Dates: start: 20150224, end: 20150303

REACTIONS (7)
  - Device expulsion [None]
  - Off label use [None]
  - Pain [Recovering/Resolving]
  - Embedded device [Recovering/Resolving]
  - Post procedural haemorrhage [Recovered/Resolved]
  - Off label use [None]
  - Device deployment issue [Recovering/Resolving]

NARRATIVE: CASE EVENT DATE: 2015
